FAERS Safety Report 10567182 (Version 2)
Quarter: 2014Q4

REPORT INFORMATION
  Report Type: Spontaneous
  Country: JP (occurrence: JP)
  Receive Date: 20141105
  Receipt Date: 20141105
  Transmission Date: 20150529
  Serious: Yes (Other)
  Sender: FDA-Public Use
  Company Number: JP-ASTRAZENECA-2014SE78407

PATIENT
  Age: 50 Year
  Sex: Male

DRUGS (14)
  1. DEPAS [Suspect]
     Active Substance: ETIZOLAM
     Route: 065
  2. SILECE [Suspect]
     Active Substance: FLUNITRAZEPAM
     Route: 065
  3. LEXOTAN [Suspect]
     Active Substance: BROMAZEPAM
     Route: 065
  4. TRAMCET [Suspect]
     Active Substance: ACETAMINOPHEN\TRAMADOL
     Route: 065
  5. OPALMON [Suspect]
     Active Substance: LIMAPROST
     Route: 065
  6. FOIPAN [Suspect]
     Active Substance: CAMOSTAT MESYLATE
     Route: 065
  7. VEGETAMIN A [Suspect]
     Active Substance: CHLORPROMAZINE HYDROCHLORIDE\PHENOBARBITAL\PROMETHAZINE
     Route: 065
  8. MYSLEE [Suspect]
     Active Substance: ZOLPIDEM TARTRATE
     Route: 065
  9. PURSENNID [Suspect]
     Active Substance: SENNOSIDES A AND B
     Route: 065
  10. LYRICA [Suspect]
     Active Substance: PREGABALIN
     Indication: BACK PAIN
     Route: 048
     Dates: start: 201304
  11. VOLTAREN [Suspect]
     Active Substance: DICLOFENAC SODIUM
     Route: 065
  12. NEXIUM [Suspect]
     Active Substance: ESOMEPRAZOLE MAGNESIUM
     Route: 048
  13. RIVOTRIL [Suspect]
     Active Substance: CLONAZEPAM
     Route: 065
  14. LYRICA [Suspect]
     Active Substance: PREGABALIN
     Indication: MUSCULOSKELETAL PAIN
     Route: 048
     Dates: start: 201304

REACTIONS (2)
  - Weight increased [Unknown]
  - Hyperphagia [Unknown]
